FAERS Safety Report 8516857-9 (Version None)
Quarter: 2012Q2

REPORT INFORMATION
  Report Type: 
  Country: None (occurrence: None)
  Receive Date: 20120406
  Receipt Date: 20100121
  Transmission Date: 20120825
  Serious: Yes (Other)
  Sender: FDA-Public Use
  Company Number: PHEH2010US01264

PATIENT

DRUGS (1)
  1. TASIGNA [Suspect]
     Dosage: , ORAL
     Route: 048

REACTIONS (1)
  - RENAL FAILURE [None]
